FAERS Safety Report 13528574 (Version 1)
Quarter: 2017Q2

REPORT INFORMATION
  Report Type: Report from Study
  Country: US (occurrence: US)
  Receive Date: 20170509
  Receipt Date: 20170509
  Transmission Date: 20170830
  Serious: Yes (Life-Threatening, Hospitalization)
  Sender: FDA-Public Use
  Company Number: PHHO2011US023104

PATIENT
  Age: 4 Year
  Sex: Male
  Weight: 16.2 kg

DRUGS (8)
  1. ARRANON [Suspect]
     Active Substance: NELARABINE
     Indication: T-CELL TYPE ACUTE LEUKAEMIA
     Dosage: 650 MG/M2, CYCLIC (OVER 60 MIN, DAYS 1-5 AND 43-47)
     Route: 042
     Dates: start: 20110315, end: 20110320
  2. CYTARABINE. [Suspect]
     Active Substance: CYTARABINE
     Indication: T-CELL TYPE ACUTE LEUKAEMIA
     Dosage: 75 MG/M2, CYCLIC
     Route: 037
  3. BACTRIM [Concomitant]
     Active Substance: SULFAMETHOXAZOLE\TRIMETHOPRIM
     Indication: PRODUCT USED FOR UNKNOWN INDICATION
     Route: 065
  4. METHOTREXATE. [Suspect]
     Active Substance: METHOTREXATE
     Indication: T-CELL TYPE ACUTE LEUKAEMIA
     Dosage: 8-15MG (AGE-BASED DOSING) IT, DAYS 15, 22 AND 57 AND 64
     Route: 037
  5. VINCRISTINE SULPHATE [Suspect]
     Active Substance: VINCRISTINE SULFATE
     Indication: T-CELL TYPE ACUTE LEUKAEMIA
     Dosage: 1.5 MG/M2, CYCLIC
     Route: 042
  6. PEGASPARGASE [Suspect]
     Active Substance: PEGASPARGASE
     Indication: T-CELL TYPE ACUTE LEUKAEMIA
     Dosage: 2500 IU/M2, CYCLIC
     Route: 030
  7. ARRANON [Suspect]
     Active Substance: NELARABINE
     Dosage: 450 MG/M2, CYCLIC (8-15MG (AGE-BASED DOSING) IT, DAYS 15, 22 AND 57 AND 64)
     Route: 042
     Dates: start: 20110419, end: 20110423
  8. CYCLOPHOSPHAMIDE. [Suspect]
     Active Substance: CYCLOPHOSPHAMIDE
     Indication: T-CELL TYPE ACUTE LEUKAEMIA
     Dosage: 1000 MG/M2, CYCLIC
     Route: 042

REACTIONS (4)
  - Aspartate aminotransferase increased [Recovered/Resolved]
  - Alanine aminotransferase increased [Recovered/Resolved]
  - Muscular weakness [Recovering/Resolving]
  - Rhabdomyolysis [Recovering/Resolving]

NARRATIVE: CASE EVENT DATE: 20110426
